FAERS Safety Report 6022233-3 (Version None)
Quarter: 2008Q4

REPORT INFORMATION
  Report Type: 
  Country: None (occurrence: None)
  Receive Date: 20081229
  Receipt Date: 20081222
  Transmission Date: 20090506
  Serious: Yes (Hospitalization, Other)
  Sender: FDA-Public Use
  Company Number: FR-ABBOTT-08P-056-0472299-00

PATIENT
  Sex: Male

DRUGS (11)
  1. KALETRA [Suspect]
     Indication: HIV INFECTION
     Route: 048
     Dates: start: 20080527, end: 20080708
  2. SULFAMETHOXAZOLE AND TRIMETHOPRIM [Suspect]
     Indication: INFECTION PROPHYLAXIS
     Route: 048
     Dates: start: 20080527, end: 20080728
  3. SULFAMETHOXAZOLE AND TRIMETHOPRIM [Suspect]
     Dates: start: 20081101
  4. EMTRICITABINE W/TENOFOVIR DISOPROXIL FUMARATE [Suspect]
     Indication: HIV INFECTION
     Route: 048
     Dates: start: 20080527, end: 20080708
  5. EMTRICITABINE W/TENOFOVIR DISOPROXIL FUMARATE [Suspect]
     Route: 048
  6. ENFUVIRTIDE [Concomitant]
     Indication: HIV INFECTION
     Route: 048
     Dates: start: 20080721, end: 20081203
  7. PENTAMIDINE DISETHIONATE [Concomitant]
     Indication: ANTIFUNGAL PROPHYLAXIS
     Route: 055
     Dates: start: 20080727
  8. TENOFOVIR DISOPROXIL FUMARATE [Concomitant]
     Indication: HIV INFECTION
     Route: 048
     Dates: start: 20080727
  9. LAMIVUDINE [Concomitant]
     Indication: HIV INFECTION
     Route: 048
     Dates: start: 20080727
  10. METRONIDAZOLE [Concomitant]
     Indication: DRUG USE FOR UNKNOWN INDICATION
     Dosage: 3 250MG TABLETS
     Route: 048
  11. ATAZANAVIR [Concomitant]
     Indication: HIV INFECTION
     Dates: start: 20081203

REACTIONS (11)
  - BLOOD ERYTHROPOIETIN ABNORMAL [None]
  - BLOOD FOLATE DECREASED [None]
  - CYTOLYTIC HEPATITIS [None]
  - EOSINOPHILIA [None]
  - FATIGUE [None]
  - GIARDIASIS [None]
  - JAUNDICE [None]
  - NEMATODIASIS [None]
  - NEUTROPENIA [None]
  - PLATELET COUNT DECREASED [None]
  - PYREXIA [None]
